FAERS Safety Report 4711827-0 (Version None)
Quarter: 2005Q2

REPORT INFORMATION
  Report Type: 
  Country: None (occurrence: None)
  Receive Date: 20050629
  Receipt Date: 20050523
  Transmission Date: 20051028
  Serious: No
  Sender: FDA-Public Use
  Company Number: 05P-163-0301237-00

PATIENT
  Age: 56 Year
  Sex: Female
  Weight: 50.8029 kg

DRUGS (4)
  1. HUMIRA [Suspect]
     Indication: RHEUMATOID ARTHRITIS
     Dosage: 40 MG, 1 IN 2 WK, SUBCUTANEOUS
     Route: 058
     Dates: start: 20050201
  2. LEFLUNOMIDE [Concomitant]
  3. RISEDRONATE SODIUM [Concomitant]
  4. ESTROGENS CONJUGATED [Concomitant]

REACTIONS (4)
  - DYSGEUSIA [None]
  - INJECTION SITE ERYTHEMA [None]
  - INJECTION SITE PRURITUS [None]
  - INJECTION SITE SWELLING [None]
